FAERS Safety Report 6449115-7 (Version None)
Quarter: 2009Q4

REPORT INFORMATION
  Report Type: 
  Country: None (occurrence: None)
  Receive Date: 20091120
  Receipt Date: 20091109
  Transmission Date: 20100525
  Serious: Yes (Other)
  Sender: FDA-Public Use
  Company Number: GB-JNJFOC-20091101789

PATIENT
  Sex: Male
  Weight: 82.55 kg

DRUGS (5)
  1. TRAMADOL HCL [Suspect]
     Indication: DRUG USE FOR UNKNOWN INDICATION
     Route: 065
  2. METFORMIN HCL [Interacting]
     Indication: DRUG USE FOR UNKNOWN INDICATION
     Route: 065
  3. BENDROFLUAZIDE [Concomitant]
  4. LOSARTAN POTASSIUM [Concomitant]
  5. SIMVASTATIN [Concomitant]

REACTIONS (4)
  - ASTHENIA [None]
  - DECREASED APPETITE [None]
  - DRUG INTERACTION [None]
  - NAUSEA [None]
